FAERS Safety Report 8720088 (Version 2)
Quarter: 2012Q4

REPORT INFORMATION
  Report Type: 
  Country: US (occurrence: US)
  Receive Date: 20120813
  Receipt Date: 20120829
  Transmission Date: 20130627
  Serious: Yes (Hospitalization, Other)
  Sender: FDA-Public Use
  Company Number: US-ASTELLAS-2012US006852

PATIENT
  Age: 56 Year
  Sex: Male
  Weight: 114 kg

DRUGS (10)
  1. PROGRAF [Suspect]
     Indication: PROPHYLAXIS AGAINST GRAFT VERSUS HOST DISEASE
     Dosage: 1 mg, bid
     Route: 048
     Dates: start: 20081029
  2. COLACE [Concomitant]
     Indication: PRODUCT USED FOR UNKNOWN INDICATION
     Dosage: 100 mg, bid
     Route: 048
     Dates: start: 20081029
  3. DAPSONE [Concomitant]
     Indication: ANTIFUNGAL PROPHYLAXIS
     Dosage: 100 mg, UID/QD
     Route: 048
     Dates: start: 20081029
  4. ENTOCORT EC [Concomitant]
     Indication: PRODUCT USED FOR UNKNOWN INDICATION
     Dosage: 3 mg, bid
     Route: 048
     Dates: start: 20081029
  5. LACTAID [Concomitant]
     Indication: PRODUCT USED FOR UNKNOWN INDICATION
     Dosage: 2-3 Tabs prn
     Route: 048
     Dates: start: 20081029
  6. ZOVIRAX                            /00587301/ [Concomitant]
     Indication: ANTIVIRAL PROPHYLAXIS
     Dosage: 400 mg, bid
     Route: 048
     Dates: start: 20081029, end: 20090731
  7. NOXAFIL [Concomitant]
     Indication: PRODUCT USED FOR UNKNOWN INDICATION
     Dosage: 200 mg, qid
     Route: 048
     Dates: start: 20081029
  8. TAMSULOSIN [Concomitant]
     Indication: PRODUCT USED FOR UNKNOWN INDICATION
     Dosage: 0.4 mg, QHS
     Route: 048
     Dates: start: 20081029
  9. NORVASC [Concomitant]
     Indication: PRODUCT USED FOR UNKNOWN INDICATION
     Dosage: 10 mg, UID/QD
     Route: 048
     Dates: start: 20081029
  10. REGLAN                             /00041901/ [Concomitant]
     Indication: PRODUCT USED FOR UNKNOWN INDICATION
     Dosage: 5 mg, qid
     Route: 048
     Dates: start: 20081029

REACTIONS (19)
  - Off label use [Unknown]
  - Obliterative bronchiolitis [Recovered/Resolved]
  - Graft versus host disease [Not Recovered/Not Resolved]
  - Mycobacterium avium complex infection [Recovered/Resolved]
  - Acute respiratory failure [Recovered/Resolved]
  - Sepsis [Recovered/Resolved]
  - Hypoxia [Recovered/Resolved]
  - Pneumonia staphylococcal [Unknown]
  - Renal failure [Recovered/Resolved]
  - Confusional state [Recovered/Resolved]
  - Hyperkalaemia [Recovered/Resolved]
  - Respiratory distress [Recovered/Resolved]
  - Dyspnoea exertional [Unknown]
  - Cough [Recovered/Resolved]
  - Muscular weakness [Unknown]
  - Alopecia [Unknown]
  - Oedema peripheral [Unknown]
  - Fatigue [Unknown]
  - Blood magnesium decreased [Unknown]
